FAERS Safety Report 8183756-4 (Version None)
Quarter: 2012Q1

REPORT INFORMATION
  Report Type: 
  Country: None (occurrence: None)
  Receive Date: 20120305
  Receipt Date: 20120229
  Transmission Date: 20120608
  Serious: Yes (Death)
  Sender: FDA-Public Use
  Company Number: PHHY2012HU017802

PATIENT
  Age: 67 Year
  Sex: Female

DRUGS (6)
  1. ZOMETA [Suspect]
     Dates: start: 20090520
  2. ZOMETA [Suspect]
     Dates: start: 20090819
  3. ZOMETA [Suspect]
  4. ZOMETA [Suspect]
  5. ZOMETA [Suspect]
     Dates: start: 20091001
  6. ZOMETA [Suspect]

REACTIONS (1)
  - DEATH [None]
